FAERS Safety Report 4840745-2 (Version None)
Quarter: 2005Q4

REPORT INFORMATION
  Report Type: 
  Country: None (occurrence: None)
  Receive Date: 20051125
  Receipt Date: 20051114
  Transmission Date: 20060501
  Serious: Yes (Hospitalization, Other)
  Sender: FDA-Public Use
  Company Number: HQWYE239102SEP05

PATIENT
  Age: 71 Year
  Sex: Female
  Weight: 85.08 kg

DRUGS (8)
  1. RALOXIFENE, CONTROL FOR BAZEDOXIFENE ACETATE, CAPSULE [Suspect]
     Indication: OSTEOPOROSIS
     Dosage: 60 MG 1X PER 1 DAY, ORAL
     Route: 048
     Dates: start: 20021205, end: 20050809
  2. CALTRATE (CALCIUM CARBONATE) [Concomitant]
  3. HDYROCHLOROTHIAZID (HYDROCHLOROTHIAZIDE) [Concomitant]
  4. LIPITOR [Concomitant]
  5. PREVACID [Concomitant]
  6. SYNTHROID [Concomitant]
  7. TIMOLOL MALEATE [Concomitant]
  8. ASPIRIN [Concomitant]

REACTIONS (8)
  - ANGINA UNSTABLE [None]
  - APOLIPOPROTEIN B ABNORMAL [None]
  - BLOOD FIBRINOGEN INCREASED [None]
  - BLOOD HOMOCYSTEINE INCREASED [None]
  - CORONARY ARTERY STENOSIS [None]
  - DIZZINESS [None]
  - GLUCOSE TOLERANCE IMPAIRED [None]
  - LOW DENSITY LIPOPROTEIN INCREASED [None]
